FAERS Safety Report 6118622-9 (Version None)
Quarter: 2009Q1

REPORT INFORMATION
  Report Type: 
  Country: None (occurrence: None)
  Receive Date: 20090314
  Receipt Date: 20090223
  Transmission Date: 20090719
  Serious: No
  Sender: FDA-Public Use
  Company Number: US-ABBOTT-09P-163-0559079-00

PATIENT
  Sex: Female
  Weight: 74.91 kg

DRUGS (13)
  1. HUMIRA [Suspect]
     Indication: PSORIASIS
     Route: 058
     Dates: start: 20081201
  2. ATENOLOL [Concomitant]
     Indication: HYPERTENSION
     Route: 048
     Dates: start: 19930101
  3. METFORMIN HCL [Concomitant]
     Indication: DIABETES MELLITUS
     Dosage: BID
     Route: 048
  4. PAROXETINE HCL [Concomitant]
     Indication: ANXIETY
     Dosage: 10MG IN AM, 20MG IN PM
     Route: 048
  5. PAROXETINE HCL [Concomitant]
     Indication: PANIC DISORDER
  6. ALPRAZOLAM [Concomitant]
     Indication: ANXIETY
     Dosage: 25 MG QD AND PRN
     Route: 048
  7. ALPRAZOLAM [Concomitant]
     Indication: PANIC DISORDER
  8. ZOLPIDEM TARTRATE [Concomitant]
     Indication: ANXIETY
     Route: 048
  9. SIMVASTATIN [Concomitant]
     Indication: BLOOD CHOLESTEROL INCREASED
     Route: 048
  10. ASPIRIN [Concomitant]
     Indication: DRUG USE FOR UNKNOWN INDICATION
     Dosage: TAKEN WITH SIMCOR
     Route: 048
  11. VITAMIN B COMPLEX CAP [Concomitant]
     Indication: VITAMIN SUPPLEMENTATION
  12. FISH OIL [Concomitant]
     Indication: MINERAL SUPPLEMENTATION
  13. CALCIUM W/VITAMIN D NOS [Concomitant]
     Indication: OSTEOPOROSIS
     Route: 048

REACTIONS (5)
  - DRUG DELIVERY SYSTEM MALFUNCTION [None]
  - INJECTION SITE ERYTHEMA [None]
  - INJECTION SITE HAEMORRHAGE [None]
  - INJECTION SITE PAIN [None]
  - INJECTION SITE PRURITUS [None]
